FAERS Safety Report 8776217 (Version 2)
Quarter: 2013Q4

REPORT INFORMATION
  Report Type: Spontaneous
  Country: US (occurrence: US)
  Receive Date: 20120910
  Receipt Date: 20131031
  Transmission Date: 20140711
  Serious: No
  Sender: FDA-Public Use
  Company Number: US-009507513-2012SP035428

PATIENT
  Sex: Male

DRUGS (1)
  1. DR. SCHOLL^S FREEZE AWAY COMMON + PLANTAR WART REMOVER [Suspect]
     Indication: SKIN PAPILLOMA
     Dosage: 3 DF, UNKNOWN
     Route: 061
     Dates: start: 201204

REACTIONS (1)
  - Drug ineffective [Not Recovered/Not Resolved]
